FAERS Safety Report 8574522 (Version 5)
Quarter: 2013Q1

REPORT INFORMATION
  Report Type: Report from Study
  Country: BR (occurrence: BR)
  Receive Date: 20120522
  Receipt Date: 20130228
  Transmission Date: 20140127
  Serious: Yes (Disabling, Other)
  Sender: FDA-Public Use
  Company Number: BR-ABBOTT-12P-020-0936051-00

PATIENT
  Age: 65 None
  Sex: Male
  Weight: 89 kg

DRUGS (10)
  1. HUMIRA 40 MG/ 0.8 ML PRE-FILLED SYRINGE [Suspect]
     Indication: PSORIATIC ARTHROPATHY
     Route: 058
     Dates: start: 20080627
  2. DIGOXIN [Concomitant]
     Indication: VASOCONSTRICTION
     Dosage: IN THE MORNING
     Route: 048
  3. MAREVAN [Concomitant]
     Indication: ANTICOAGULANT THERAPY
     Dosage: IN THE MORNING
     Route: 048
  4. ENALAPRIL MALEATE [Concomitant]
     Indication: HYPERTENSION
     Dosage: IN THE MORNING / AT NIGHT
     Route: 048
  5. SINVASCOR [Concomitant]
     Indication: BLOOD CHOLESTEROL
     Dosage: AFTER DINNER
     Route: 048
  6. GLIFAGE [Concomitant]
     Indication: DIABETES MELLITUS
     Route: 048
  7. PURAN T4 [Concomitant]
     Indication: THYROID DISORDER
     Dosage: FASTING
     Route: 048
  8. VERAPAMIL HYDROCHLORIDE [Concomitant]
     Indication: ARRHYTHMIA
     Dosage: IN THE MORNING
     Route: 048
  9. ZOLPIDEM [Concomitant]
     Indication: SLEEP DISORDER
     Dosage: 0.5 TABLET OR 1 TABLET AT NIGHT
     Route: 048
  10. UNKNOWN MEDICATION [Concomitant]
     Indication: ARTHROPATHY
     Dates: start: 201202

REACTIONS (29)
  - Thoracic vertebral fracture [Recovering/Resolving]
  - Road traffic accident [Unknown]
  - Bedridden [Recovered/Resolved]
  - Movement disorder [Recovered/Resolved]
  - Mental disorder [Recovered/Resolved]
  - Anxiety [Recovered/Resolved]
  - Confusional state [Recovered/Resolved]
  - Depression [Recovered/Resolved]
  - Incoherent [Recovered/Resolved]
  - Feeling of despair [Recovered/Resolved]
  - Nervousness [Not Recovered/Not Resolved]
  - Stress [Not Recovered/Not Resolved]
  - Psoriasis [Recovering/Resolving]
  - Skin exfoliation [Not Recovered/Not Resolved]
  - Gait disturbance [Not Recovered/Not Resolved]
  - Skin induration [Not Recovered/Not Resolved]
  - Skin exfoliation [Not Recovered/Not Resolved]
  - Arthralgia [Not Recovered/Not Resolved]
  - Haemorrhage [Unknown]
  - Injection site pruritus [Recovered/Resolved]
  - Injection site pain [Recovered/Resolved]
  - Skin exfoliation [Unknown]
  - Skin atrophy [Unknown]
  - Skin fissures [Unknown]
  - Haemorrhage [Unknown]
  - Pain in extremity [Unknown]
  - Joint injury [Unknown]
  - Joint injury [Unknown]
  - Joint injury [Unknown]
